FAERS Safety Report 15573637 (Version 1)
Quarter: 2018Q4

REPORT INFORMATION
  Report Type: Spontaneous
  Country: FR (occurrence: FR)
  Receive Date: 20181101
  Receipt Date: 20181101
  Transmission Date: 20190205
  Serious: Yes (Hospitalization)
  Sender: FDA-Public Use
  Company Number: FR-TEVA-2018-FR-970284

PATIENT
  Age: 74 Year
  Sex: Female
  Weight: 56 kg

DRUGS (14)
  1. PREGABALINE [Concomitant]
     Active Substance: PREGABALIN
     Route: 048
  2. RAMIPRIL. [Concomitant]
     Active Substance: RAMIPRIL
     Route: 048
  3. CHLORHYDRATE DE NEFOPAM [Concomitant]
     Active Substance: NEFOPAM HYDROCHLORIDE
     Route: 042
  4. OFLOXACINE [Suspect]
     Active Substance: OFLOXACIN
     Indication: INTERVERTEBRAL DISCITIS
     Dosage: 300 MILLIGRAM DAILY;
     Route: 048
     Dates: start: 20180608, end: 20180711
  5. CRESTOR [Concomitant]
     Active Substance: ROSUVASTATIN CALCIUM
     Route: 048
  6. EUPANTOL [Concomitant]
     Active Substance: PANTOPRAZOLE SODIUM
     Route: 048
  7. FORLAX [Concomitant]
     Active Substance: POLYETHYLENE GLYCOL 4000
     Route: 048
  8. MIRCERA [Concomitant]
     Active Substance: METHOXY POLYETHYLENE GLYCOL-EPOETIN BETA
     Route: 042
  9. OROZAMUDOL [Concomitant]
     Active Substance: TRAMADOL
     Route: 048
  10. ALPRAZOLAM. [Concomitant]
     Active Substance: ALPRAZOLAM
     Route: 048
  11. DALACINE 300 MG, G?LULE [Suspect]
     Active Substance: CLINDAMYCIN PHOSPHATE
     Indication: INTERVERTEBRAL DISCITIS
     Dosage: 1800 MILLIGRAM DAILY;
     Route: 048
     Dates: start: 20180608, end: 20180608
  12. IXEL [Concomitant]
     Active Substance: MILNACIPRAN HYDROCHLORIDE
     Route: 048
  13. LOVENOX [Concomitant]
     Active Substance: ENOXAPARIN SODIUM
     Route: 042
  14. PARACETAMOL [Concomitant]
     Active Substance: ACETAMINOPHEN
     Route: 048

REACTIONS (1)
  - Drug reaction with eosinophilia and systemic symptoms [Recovering/Resolving]

NARRATIVE: CASE EVENT DATE: 20180709
